FAERS Safety Report 26157550 (Version 1)
Quarter: 2025Q4

REPORT INFORMATION
  Report Type: Report from Study
  Country: IL (occurrence: IL)
  Receive Date: 20251215
  Receipt Date: 20251215
  Transmission Date: 20260117
  Serious: Yes (Hospitalization)
  Sender: ABBVIE
  Company Number: IL-ABBVIE-6585210

PATIENT
  Age: 79 Year
  Sex: Male
  Weight: 70 kg

DRUGS (13)
  1. FOSCARBIDOPA\FOSLEVODOPA [Suspect]
     Active Substance: FOSCARBIDOPA\FOSLEVODOPA
     Indication: Parkinson^s disease
     Dosage: LOADING DOSE DRUG: 0.6 ML?CONTINUOUS RATE PUMP SETTING BASE 0.58 ML/H?CONTINUOUS RATE PUMP SETTIN...
     Route: 058
     Dates: start: 20250106, end: 20250113
  2. FOSCARBIDOPA\FOSLEVODOPA [Suspect]
     Active Substance: FOSCARBIDOPA\FOSLEVODOPA
     Dosage: LOADING DOSE DRUG: 0.6 ML?CONTINUOUS RATE PUMP SETTING BASE 0.62 ML/H?CONTINUOUS RATE PUMP SETTIN...
     Route: 058
     Dates: start: 20250113, end: 20250203
  3. FOSCARBIDOPA\FOSLEVODOPA [Suspect]
     Active Substance: FOSCARBIDOPA\FOSLEVODOPA
     Dosage: LOADING DOSE DRUG: 0.6 ML?CONTINUOUS RATE PUMP SETTING BASE 0.7 ML/H?CONTINUOUS RATE PUMP SETTING...
     Route: 058
     Dates: start: 20250203, end: 20250222
  4. FOSCARBIDOPA\FOSLEVODOPA [Suspect]
     Active Substance: FOSCARBIDOPA\FOSLEVODOPA
     Dosage: LOADING DOSE DRUG: 0.6 ML?CONTINUOUS RATE PUMP SETTING BASE 0.17 ML/H?CONTINUOUS RATE PUMP SETTIN...
     Route: 058
     Dates: start: 20250324, end: 20250402
  5. FOSCARBIDOPA\FOSLEVODOPA [Suspect]
     Active Substance: FOSCARBIDOPA\FOSLEVODOPA
     Dosage: LOADING DOSE DRUG: 0.6 ML?CONTINUOUS RATE PUMP SETTING BASE 0.19 ML/H?CONTINUOUS RATE PUMP SETTIN...
     Route: 058
     Dates: start: 20250402, end: 20250630
  6. FOSCARBIDOPA\FOSLEVODOPA [Suspect]
     Active Substance: FOSCARBIDOPA\FOSLEVODOPA
     Dosage: LOADING DOSE DRUG: 0.6 ML?CONTINUOUS RATE PUMP SETTING BASE 0.35 ML/H?CONTINUOUS RATE PUMP SETTIN...
     Route: 058
     Dates: start: 20250630, end: 20250804
  7. FOSCARBIDOPA\FOSLEVODOPA [Suspect]
     Active Substance: FOSCARBIDOPA\FOSLEVODOPA
     Dosage: LOADING DOSE DRUG: 0.6 ML?CONTINUOUS RATE PUMP SETTING BASE 0.32 ML/H?CONTINUOUS RATE PUMP SETTIN...
     Route: 058
     Dates: start: 20250804
  8. LORAZEPAM [Concomitant]
     Active Substance: LORAZEPAM
     Indication: Insomnia
     Route: 048
     Dates: start: 20240401
  9. ESCITALOPRAM [Concomitant]
     Active Substance: ESCITALOPRAM OXALATE
     Indication: Depression
     Route: 048
     Dates: start: 2015
  10. ASPIRIN [Concomitant]
     Active Substance: ASPIRIN
     Indication: Myocardial ischaemia
     Route: 048
     Dates: start: 20220822
  11. ATORVASTATIN [Concomitant]
     Active Substance: ATORVASTATIN
     Indication: Myocardial ischaemia
     Route: 048
     Dates: start: 20220701
  12. DULOXETINE [Concomitant]
     Active Substance: DULOXETINE
     Indication: Depression
     Route: 048
     Dates: start: 20250127
  13. SINEMET CR [Concomitant]
     Active Substance: CARBIDOPA\LEVODOPA
     Indication: Parkinson^s disease
     Route: 048
     Dates: start: 20250227

REACTIONS (1)
  - Urinary tract infection [Recovered/Resolved]

NARRATIVE: CASE EVENT DATE: 20251008
